FAERS Safety Report 7812019-9 (Version None)
Quarter: 2011Q4

REPORT INFORMATION
  Report Type: 
  Country: None (occurrence: None)
  Receive Date: 20111013
  Receipt Date: 20110927
  Transmission Date: 20120403
  Serious: Yes (Hospitalization, Disabling, Congenital Anomaly)
  Sender: FDA-Public Use
  Company Number: FR-ROCHE-1000707

PATIENT
  Sex: Female
  Weight: 54 kg

DRUGS (6)
  1. ACTEMRA [Suspect]
     Dates: start: 20110601
  2. ACTEMRA [Suspect]
     Indication: MUSCULOSKELETAL PAIN
     Route: 042
     Dates: start: 20101101
  3. ACTEMRA [Suspect]
     Dates: start: 20110801
  4. METHOTREXATE SODIUM [Concomitant]
     Route: 058
     Dates: start: 20101101
  5. PREDNISONE [Concomitant]
     Dates: start: 20101101
  6. ACTEMRA [Suspect]
     Dates: start: 20110701

REACTIONS (3)
  - VITRITIS [None]
  - UVEITIS [None]
  - VISUAL ACUITY REDUCED [None]
